FAERS Safety Report 6310400-0 (Version None)
Quarter: 2009Q3

REPORT INFORMATION
  Report Type: 
  Country: None (occurrence: None)
  Receive Date: 20090814
  Receipt Date: 20090804
  Transmission Date: 20100115
  Serious: Yes (Other)
  Sender: FDA-Public Use
  Company Number: GB-PFIZER INC-2009249821

PATIENT
  Age: 65 Year

DRUGS (4)
  1. CHAMPIX [Suspect]
     Indication: SMOKING CESSATION THERAPY
     Dosage: UNK
     Route: 048
     Dates: start: 20090529, end: 20090612
  2. ADALAT [Concomitant]
     Dosage: 30 MG, UNK
     Route: 048
  3. BRUFEN [Concomitant]
  4. TIOTROPIUM BROMIDE [Concomitant]

REACTIONS (3)
  - CRYING [None]
  - DEPRESSED MOOD [None]
  - DEPRESSION [None]
